FAERS Safety Report 17957863 (Version 3)
Quarter: 2023Q1

REPORT INFORMATION
  Report Type: Report from Study
  Country: US (occurrence: US)
  Receive Date: 20200629
  Receipt Date: 20230321
  Transmission Date: 20230417
  Serious: No
  Sender: FDA-Public Use
  Company Number: US-SA-2020SA100776

PATIENT
  Age: 62 Year
  Sex: Female

DRUGS (12)
  1. DUPILUMAB [Suspect]
     Active Substance: DUPILUMAB
     Indication: Nasal polyps
     Dosage: 300 MG, QOW
     Route: 058
     Dates: start: 202003, end: 202102
  2. DUPILUMAB [Suspect]
     Active Substance: DUPILUMAB
     Indication: Allergy to plants
     Dosage: UNK UNK, 1X
     Dates: start: 2020, end: 2020
  3. DUPILUMAB [Suspect]
     Active Substance: DUPILUMAB
     Dosage: UNK
  4. CYCLOBENZAPRINE HYDROCHLORIDE [Concomitant]
     Active Substance: CYCLOBENZAPRINE HYDROCHLORIDE
     Dosage: UNK
  5. MELATONIN [Concomitant]
     Active Substance: MELATONIN
  6. INDERAL LA [Concomitant]
     Active Substance: PROPRANOLOL HYDROCHLORIDE
     Dosage: 120 MG
  7. RIZATRIPTAN [Concomitant]
     Active Substance: RIZATRIPTAN
     Dosage: UNK
  8. CLARITHROMYCIN [Concomitant]
     Active Substance: CLARITHROMYCIN
  9. MUCINEX [Concomitant]
     Active Substance: GUAIFENESIN
     Dosage: 1200 MG, Q12H
  10. MAXZIDE [Concomitant]
     Active Substance: HYDROCHLOROTHIAZIDE\TRIAMTERENE
  11. ATORVASTATIN CALCIUM [Concomitant]
     Active Substance: ATORVASTATIN CALCIUM
  12. EMGALITY [Concomitant]
     Active Substance: GALCANEZUMAB-GNLM

REACTIONS (4)
  - Hot flush [Unknown]
  - Sinusitis [Unknown]
  - Sinus operation [Unknown]
  - Product use in unapproved indication [Unknown]

NARRATIVE: CASE EVENT DATE: 20200101
